FAERS Safety Report 9669326 (Version 1)
Quarter: 2013Q4

REPORT INFORMATION
  Report Type: Spontaneous
  Country: GB (occurrence: GB)
  Receive Date: 20131105
  Receipt Date: 20131105
  Transmission Date: 20140711
  Serious: Yes (Hospitalization)
  Sender: FDA-Public Use
  Company Number: GB-ASTRAZENECA-2013SE79228

PATIENT
  Age: 77 Year
  Sex: 0

DRUGS (19)
  1. MEROPENEM [Suspect]
     Indication: LOWER RESPIRATORY TRACT INFECTION
     Route: 041
     Dates: start: 20110422, end: 20110429
  2. AMOXICILLIN [Suspect]
     Route: 048
     Dates: start: 20100329, end: 20100405
  3. CLARITHROMYCIN [Suspect]
     Indication: PNEUMONIA ASPIRATION
     Route: 042
     Dates: start: 20110414, end: 20110414
  4. CLARITHROMYCIN [Suspect]
     Indication: LOWER RESPIRATORY TRACT INFECTION
     Route: 042
     Dates: start: 20110414, end: 20110414
  5. CLARITHROMYCIN [Suspect]
     Indication: PNEUMONIA ASPIRATION
     Route: 042
     Dates: start: 20110422, end: 20110428
  6. CLARITHROMYCIN [Suspect]
     Indication: LOWER RESPIRATORY TRACT INFECTION
     Route: 042
     Dates: start: 20110422, end: 20110428
  7. TAZOCIN [Suspect]
     Indication: RESPIRATORY FAILURE
     Dosage: 4.5 G, 3/1 DAYS, GENERIC
     Route: 041
     Dates: start: 20110414, end: 20110422
  8. TAZOCIN [Suspect]
     Indication: PSEUDOMONAS INFECTION
     Dosage: 4.5 G, 3/1 DAYS, GENERIC
     Route: 041
     Dates: start: 20110414, end: 20110422
  9. TAZOCIN [Suspect]
     Indication: PNEUMONIA ASPIRATION
     Dosage: 4.5 G, 3/1 DAYS, GENERIC
     Route: 041
     Dates: start: 20110414, end: 20110422
  10. TAZOCIN [Suspect]
     Indication: RESPIRATORY FAILURE
     Dosage: 4.5 G, 3/1 DAYS, GENERIC
     Route: 041
     Dates: start: 20110429, end: 20110509
  11. TAZOCIN [Suspect]
     Indication: PSEUDOMONAS INFECTION
     Dosage: 4.5 G, 3/1 DAYS, GENERIC
     Route: 041
     Dates: start: 20110429, end: 20110509
  12. TAZOCIN [Suspect]
     Indication: PNEUMONIA ASPIRATION
     Dosage: 4.5 G, 3/1 DAYS, GENERIC
     Route: 041
     Dates: start: 20110429, end: 20110509
  13. TAZOCIN [Suspect]
     Indication: RESPIRATORY FAILURE
     Route: 065
  14. TAZOCIN [Suspect]
     Indication: PSEUDOMONAS INFECTION
     Route: 065
  15. TAZOCIN [Suspect]
     Indication: PNEUMONIA ASPIRATION
     Route: 065
  16. CO-AMOXICLAV [Suspect]
     Indication: PNEUMONIA ASPIRATION
     Route: 042
     Dates: start: 20110413, end: 20110413
  17. CIPROFLOXACIN [Suspect]
     Indication: PSEUDOMONAS INFECTION
     Route: 048
     Dates: start: 20110428, end: 20110430
  18. LEVOFLOXACIN [Suspect]
     Indication: PNEUMONIA ASPIRATION
     Route: 042
     Dates: start: 20110414, end: 20110414
  19. TEICOPLANIN [Suspect]
     Indication: STAPHYLOCOCCAL INFECTION
     Route: 065
     Dates: start: 20110422, end: 20110422

REACTIONS (9)
  - Abnormal faeces [Unknown]
  - C-reactive protein increased [Unknown]
  - Pyrexia [Unknown]
  - Lung consolidation [Unknown]
  - Pseudomonas infection [Unknown]
  - Faeces discoloured [Unknown]
  - White blood cell count increased [Unknown]
  - Clostridium difficile infection [Recovered/Resolved]
  - Diarrhoea [Unknown]
